FAERS Safety Report 10814107 (Version 1)
Quarter: 2015Q1

REPORT INFORMATION
  Report Type: Report from Study
  Country: US (occurrence: US)
  Receive Date: 20150218
  Receipt Date: 20150218
  Transmission Date: 20150721
  Serious: No
  Sender: FDA-Public Use
  Company Number: US-ABBVIE-14K-163-1281455-00

PATIENT
  Age: 47 Year
  Sex: Male

DRUGS (1)
  1. HUMIRA [Suspect]
     Active Substance: ADALIMUMAB
     Indication: PSORIATIC ARTHROPATHY
     Route: 058
     Dates: start: 20130913, end: 201408

REACTIONS (4)
  - Cellulitis [Recovering/Resolving]
  - Wound [Recovering/Resolving]
  - Wound infection [Unknown]
  - Venomous sting [Recovering/Resolving]

NARRATIVE: CASE EVENT DATE: 201408
